FAERS Safety Report 8502294-X (Version None)
Quarter: 2012Q3

REPORT INFORMATION
  Report Type: 
  Country: None (occurrence: None)
  Receive Date: 20120711
  Receipt Date: 20111114
  Transmission Date: 20120928
  Serious: No
  Sender: FDA-Public Use
  Company Number: US-COVIDIEN/TYCO HEALTHCARE/MALLINCKRODT-T201102703

PATIENT
  Sex: Female

DRUGS (1)
  1. OXYCODONE HCL [Suspect]
     Indication: PAIN
     Dosage: 5 MG, 1-2 TABLETS Q 4-6 HRS PRN, BREAKS TABLET IN HALF 2-3 TIMES A DAY
     Route: 048
     Dates: start: 20110915, end: 20111113

REACTIONS (5)
  - DRUG INEFFECTIVE [None]
  - DISORIENTATION [None]
  - FEELING ABNORMAL [None]
  - IRRITABILITY [None]
  - HEADACHE [None]
